FAERS Safety Report 5614448-0 (Version None)
Quarter: 2008Q1

REPORT INFORMATION
  Report Type: 
  Country: None (occurrence: None)
  Receive Date: 20080130
  Receipt Date: 20080122
  Transmission Date: 20080703
  Serious: Yes (Other)
  Sender: FDA-Public Use
  Company Number: 2008AP000231

PATIENT
  Age: 26 Year
  Sex: Male

DRUGS (3)
  1. PAROXETINE HCL [Suspect]
     Indication: DEPRESSION
     Dosage: 30 MG UNK PO QD ; 40 MG UNK PO QD
     Route: 048
     Dates: start: 19970219
  2. PAROXETINE HCL [Suspect]
     Indication: DEPRESSION
     Dosage: 30 MG UNK PO QD ; 40 MG UNK PO QD
     Route: 048
     Dates: start: 20050301
  3. AMITRIPTYLINE HCL [Concomitant]

REACTIONS (6)
  - ANGER [None]
  - DRUG WITHDRAWAL SYNDROME [None]
  - FATIGUE [None]
  - MOOD SWINGS [None]
  - SOCIAL PHOBIA [None]
  - SUICIDAL IDEATION [None]
